FAERS Safety Report 5328322-0 (Version None)
Quarter: 2007Q2

REPORT INFORMATION
  Report Type: 
  Country: None (occurrence: None)
  Receive Date: 20070518
  Receipt Date: 20070511
  Transmission Date: 20071010
  Serious: Yes (Hospitalization, Other)
  Sender: FDA-Public Use
  Company Number: PHEH2007US03148

PATIENT
  Age: 3 Year
  Sex: Female
  Weight: 13.605 kg

DRUGS (9)
  1. EXJADE [Suspect]
     Indication: IRON OVERLOAD
     Dosage: 375 MG, UNK
     Route: 048
     Dates: start: 20060601, end: 20070101
  2. EXJADE [Suspect]
     Dosage: 500 MG, QD
     Route: 048
     Dates: start: 20070101, end: 20070209
  3. EXJADE [Suspect]
     Dosage: 500MG 4DAYS/WK ALT. WITH 625 MG 3 DAYS/WK
     Route: 048
     Dates: start: 20070210, end: 20070307
  4. TRIAMCINOLONE ^LECIVA^ [Concomitant]
     Route: 061
  5. ELIDEL [Concomitant]
  6. TYLENOL [Concomitant]
  7. ALBUTEROL [Concomitant]
     Dosage: UNK, PRN
     Route: 055
  8. PULMICORT [Concomitant]
     Route: 055
  9. BENADRYL ^PFIZER WARNER-LAMBERT^ [Concomitant]
     Indication: PREMEDICATION

REACTIONS (24)
  - ABDOMINAL PAIN [None]
  - ALANINE AMINOTRANSFERASE INCREASED [None]
  - ASPARTATE AMINOTRANSFERASE INCREASED [None]
  - BLOOD ALKALINE PHOSPHATASE INCREASED [None]
  - BLOOD BLISTER [None]
  - BLOOD POTASSIUM DECREASED [None]
  - BLOOD URINE PRESENT [None]
  - CONSTIPATION [None]
  - DEHYDRATION [None]
  - EAR HAEMORRHAGE [None]
  - ELECTROLYTE IMBALANCE [None]
  - GLUCOSE URINE PRESENT [None]
  - HAEMATOCRIT DECREASED [None]
  - HAEMOGLOBIN INCREASED [None]
  - MALAISE [None]
  - METABOLIC ACIDOSIS [None]
  - PLATELET COUNT DECREASED [None]
  - PROTEIN URINE PRESENT [None]
  - RENAL TUBULAR ACIDOSIS [None]
  - RETICULOCYTE COUNT DECREASED [None]
  - SERUM FERRITIN INCREASED [None]
  - TRANSAMINASES INCREASED [None]
  - UPPER RESPIRATORY TRACT INFECTION [None]
  - URINE KETONE BODY PRESENT [None]
